FAERS Safety Report 9860300 (Version 2)
Quarter: 2014Q1

REPORT INFORMATION
  Report Type: Spontaneous
  Country: JP (occurrence: JP)
  Receive Date: 20140201
  Receipt Date: 20140224
  Transmission Date: 20141002
  Serious: Yes (Other)
  Sender: FDA-Public Use
  Company Number: JP-PFIZER INC-2014025986

PATIENT
  Age: 35 Year
  Sex: Male

DRUGS (3)
  1. ZITHROMAC [Suspect]
     Indication: TONSILLITIS
     Dosage: 500 MG, DAILY
     Route: 048
     Dates: start: 20140123, end: 20140124
  2. ROZECLART [Suspect]
     Indication: TONSILLITIS
     Dosage: UNK
     Route: 041
     Dates: start: 20140123
  3. CALONAL [Concomitant]
     Dosage: UNK
     Route: 048

REACTIONS (1)
  - Rhabdomyolysis [Recovering/Resolving]
